FAERS Safety Report 25654006 (Version 5)
Quarter: 2025Q4

REPORT INFORMATION
  Report Type: Report from Study
  Country: EU (occurrence: EU)
  Receive Date: 20250807
  Receipt Date: 20251027
  Transmission Date: 20260118
  Serious: Yes (Hospitalization)
  Sender: ABBVIE
  Company Number: EU-ABBVIE-6340080

PATIENT
  Age: 89 Year
  Sex: Male

DRUGS (11)
  1. FOSCARBIDOPA\FOSLEVODOPA [Suspect]
     Active Substance: FOSCARBIDOPA\FOSLEVODOPA
     Indication: Parkinson^s disease
     Dosage: CRN: 0.16 ML/H, CR:0.22 ML/H, CRH: 0.24 ML/H, ED: 0.10 ML
     Route: 058
     Dates: start: 20250618, end: 20250619
  2. FOSCARBIDOPA\FOSLEVODOPA [Suspect]
     Active Substance: FOSCARBIDOPA\FOSLEVODOPA
     Dosage: CRN: 0.15 ML/H, CR: 0.20 ML/H, CRH: 0.24ML/H, ED: 0.10ML
     Route: 058
     Dates: start: 20250619, end: 20250620
  3. FOSCARBIDOPA\FOSLEVODOPA [Suspect]
     Active Substance: FOSCARBIDOPA\FOSLEVODOPA
     Dosage: CRN: 0.16 ML/H, CR: 0.22 ML/H, CRH: 0.24 ML/H, ED: 0.10 ML
     Route: 058
     Dates: start: 20250620, end: 20250620
  4. FOSCARBIDOPA\FOSLEVODOPA [Suspect]
     Active Substance: FOSCARBIDOPA\FOSLEVODOPA
     Dosage: CRN: 0.16 ML/H, CR: 0.24 ML/H, CRH: 0.26 ML/H, ED: 0.10 ML
     Route: 058
     Dates: start: 20250620, end: 20250620
  5. FOSCARBIDOPA\FOSLEVODOPA [Suspect]
     Active Substance: FOSCARBIDOPA\FOSLEVODOPA
     Dosage: CRN: 0.18ML/H, CR: 0.28ML/H, CRH: 0.30ML/H, ED: 0.00ML,?FIRST AND LAST ADMIN DATE: JUN 2025
     Route: 058
  6. FOSCARBIDOPA\FOSLEVODOPA [Suspect]
     Active Substance: FOSCARBIDOPA\FOSLEVODOPA
     Dosage: CRN: 0.18ML/H, CR: 0.27ML/H, CRH: 0.30ML/H, ED: 0.10ML,?FIRST AND LAST ADMIN DATE: JUN 2025
     Route: 058
  7. FOSCARBIDOPA\FOSLEVODOPA [Suspect]
     Active Substance: FOSCARBIDOPA\FOSLEVODOPA
     Dosage: DOSE: CRN: 0.18ML/H, CR: 0.27ML/H, CRH: 0.29ML/H, ED: 0.10ML,?FIRST AND LAST ADMIN DATE: 2025
     Route: 058
  8. FOSCARBIDOPA\FOSLEVODOPA [Suspect]
     Active Substance: FOSCARBIDOPA\FOSLEVODOPA
     Dosage: CRN: 0.19ML/H, CR: 0.30ML/H, CRH: 0.32ML/H, ED: 0.10ML,?FIRST AND LAST ADMIN DATE: 2025
     Route: 058
  9. FOSCARBIDOPA\FOSLEVODOPA [Suspect]
     Active Substance: FOSCARBIDOPA\FOSLEVODOPA
     Dosage: CRN: 0.17 ML/H, CR: 0.25 ML/H, CRH: 0.27 ML/H, ED: 0.10 ML?FIRST AND LAST ADMIN DATE: JUN 2025
     Route: 058
  10. FOSCARBIDOPA\FOSLEVODOPA [Suspect]
     Active Substance: FOSCARBIDOPA\FOSLEVODOPA
     Dosage: CRN: 0.16 ML/H, CR: 0.25 ML/H, CRH: 0.27 ML/H, ED: 0.10 ML,?FIRST AND LAST ADMIN DATE: JUN 2025
     Route: 058
  11. FOSCARBIDOPA\FOSLEVODOPA [Suspect]
     Active Substance: FOSCARBIDOPA\FOSLEVODOPA
     Dosage: CRN: 0.21 ML/H, CR: 0.32 ML/H, CRH: 0.35 ML/H, ED: 0.20 ML,?FIRST ADMIN DATE: 2025, DOSE INCREASED
     Route: 058

REACTIONS (13)
  - Syncope [Unknown]
  - Hallucination [Not Recovered/Not Resolved]
  - Hallucination, auditory [Not Recovered/Not Resolved]
  - Fatigue [Not Recovered/Not Resolved]
  - On and off phenomenon [Not Recovered/Not Resolved]
  - Restlessness [Recovered/Resolved]
  - Blood pressure decreased [Recovered/Resolved]
  - Freezing phenomenon [Not Recovered/Not Resolved]
  - Hypotension [Not Recovered/Not Resolved]
  - Hallucination, visual [Not Recovered/Not Resolved]
  - Erythema [Not Recovered/Not Resolved]
  - Hallucination [Recovered/Resolved]
  - Movement disorder [Not Recovered/Not Resolved]

NARRATIVE: CASE EVENT DATE: 20250101
